FAERS Safety Report 5267252-X (Version None)
Quarter: 2007Q1

REPORT INFORMATION
  Report Type: 
  Country: None (occurrence: None)
  Receive Date: 20070316
  Receipt Date: 20070313
  Transmission Date: 20070707
  Serious: Yes (Other)
  Sender: FDA-Public Use
  Company Number: US-GLAXOSMITHKLINE-A0588805A

PATIENT
  Age: 50 Year
  Sex: Female
  Weight: 45.5 kg

DRUGS (12)
  1. PARNATE [Suspect]
     Indication: DEPRESSION
     Dosage: 10MG TWICE PER DAY
     Route: 048
     Dates: start: 20051101
  2. PROVIGIL [Suspect]
     Indication: DEPRESSION
     Dosage: 200MG UNKNOWN
     Route: 048
     Dates: start: 20060101
  3. SPIRONOLACTONE [Concomitant]
  4. LAMICTAL [Concomitant]
  5. ABILIFY [Concomitant]
  6. XANAX [Concomitant]
  7. ORTHO-PREFEST [Concomitant]
  8. SYNTHROID [Concomitant]
  9. PERCOCET [Concomitant]
  10. ZANAFLEX [Concomitant]
  11. FEMHRT [Concomitant]
  12. OMEGA 3 POLYUNSATURATES [Concomitant]

REACTIONS (5)
  - DRUG INTERACTION [None]
  - FACIAL PALSY [None]
  - NEUROPATHY PERIPHERAL [None]
  - SOMNOLENCE [None]
  - WEIGHT DECREASED [None]
